FAERS Safety Report 11520685 (Version 9)
Quarter: 2018Q4

REPORT INFORMATION
  Report Type: Spontaneous
  Country: US (occurrence: US)
  Receive Date: 20150918
  Receipt Date: 20181130
  Transmission Date: 20190204
  Serious: Yes (Other)
  Sender: FDA-Public Use
  Company Number: US-PFIZER INC-2015309706

PATIENT
  Age: 62 Year
  Sex: Female
  Weight: 72 kg

DRUGS (60)
  1. SOMAVERT [Suspect]
     Active Substance: PEGVISOMANT
     Indication: MALIGNANT PITUITARY TUMOUR
     Dosage: 20 MG, 1X/DAY
     Route: 058
     Dates: start: 20101222
  2. ALENDRONATE [Concomitant]
     Active Substance: ALENDRONATE SODIUM
     Dosage: 70 MG, WEEKLY
     Route: 048
  3. PNEUMOVAX 23 [Concomitant]
     Active Substance: PNEUMOCOCCAL VACCINE, POLYVALENT 23
     Dosage: UNK
     Dates: start: 20130112, end: 20130112
  4. HUMULIN N [Concomitant]
     Active Substance: INSULIN HUMAN
     Dosage: 100 IU/ML, 2X/DAY
     Route: 058
     Dates: start: 20120611, end: 20121217
  5. LEVOXYL [Concomitant]
     Active Substance: LEVOTHYROXINE SODIUM
     Dosage: UNK
  6. GLIMEPIRIDE. [Concomitant]
     Active Substance: GLIMEPIRIDE
     Dosage: 2 MG, 1X/DAY
     Dates: start: 20120523, end: 20120810
  7. ASTAXANTHIN [Concomitant]
     Dosage: 12 MG, WEEKLY
     Route: 048
  8. SOMAVERT [Suspect]
     Active Substance: PEGVISOMANT
     Indication: ACROMEGALY
     Dosage: 30 MG, 1X/DAY
     Route: 058
     Dates: start: 1995
  9. ATORVASTATIN CALCIUM. [Concomitant]
     Active Substance: ATORVASTATIN CALCIUM
     Indication: BLOOD CHOLESTEROL ABNORMAL
     Dosage: 40 MG, 1X/DAY
     Route: 048
     Dates: start: 20130809
  10. KLOR-CON [Concomitant]
     Active Substance: POTASSIUM CHLORIDE
     Dosage: 2 DF, UNK
     Route: 048
  11. NOVOLOG [Concomitant]
     Active Substance: INSULIN ASPART
     Dosage: 100 IU/ML, 2X/DAY (23 UNITS BEFORE BREAKFAST AND 17 UNITS BEFORE SUPPER)
     Route: 058
     Dates: start: 20150720
  12. HYDROCHLOROTHIAZIDE. [Concomitant]
     Active Substance: HYDROCHLOROTHIAZIDE
     Dosage: 50 MG, 1X/DAY
     Route: 048
     Dates: start: 20150604
  13. JANUVIA [Concomitant]
     Active Substance: SITAGLIPTIN PHOSPHATE
     Dosage: 100 MG, 1X/DAY
     Route: 048
     Dates: start: 20120523, end: 20120810
  14. CYCLOBENZAPRINE HCL [Concomitant]
     Active Substance: CYCLOBENZAPRINE HYDROCHLORIDE
     Dosage: 10 MG, 1X/DAY
  15. FLEX PEN INSULIN [Concomitant]
     Dosage: AS NEEDED (IF SUGARS }200)
  16. SPIRULINA SPP. [Concomitant]
     Dosage: 500 (UNK), 1X/DAY
     Route: 048
  17. FISH OIL [Concomitant]
     Active Substance: FISH OIL
     Dosage: 1000 MG, 1X/DAY
     Route: 048
  18. SYSTANE VITAMIN OMEGA 3 SUPPLEMENT [Concomitant]
     Dosage: 500 MG, DAILY
     Route: 048
  19. OMEGA-3-ACID ETHYL ESTER [Concomitant]
     Active Substance: OMEGA-3-ACID ETHYL ESTERS
     Dosage: 1 GM/3RD TIME
  20. FLU [Concomitant]
     Active Substance: INFLUENZA VIRUS VACCINE
     Dosage: UNK
     Dates: start: 2012, end: 2012
  21. VICTOZA [Concomitant]
     Active Substance: LIRAGLUTIDE
     Dosage: 1.2 MG, DAILY
     Route: 058
  22. ERGOCALCIFEROL. [Concomitant]
     Active Substance: ERGOCALCIFEROL
     Dosage: 50000 IU, 1X/DAY
     Route: 048
     Dates: start: 20141006
  23. LEVOXYL [Concomitant]
     Active Substance: LEVOTHYROXINE SODIUM
     Dosage: 88 UG, 1X/DAY
     Route: 048
     Dates: start: 20120523
  24. LEVOXYL [Concomitant]
     Active Substance: LEVOTHYROXINE SODIUM
     Dosage: 100 UG, 1X/DAY
     Dates: start: 20120531, end: 20130218
  25. PUMPKIN OIL [Concomitant]
     Dosage: 1000 MG, DAILY
     Route: 048
  26. VITAMIN B 2 [Concomitant]
     Dosage: 50 MG, 1X/DAY
     Route: 048
  27. SOMAVERT [Suspect]
     Active Substance: PEGVISOMANT
     Dosage: 30 MG, 1X/DAY
     Route: 058
     Dates: start: 20141222
  28. SOMAVERT [Suspect]
     Active Substance: PEGVISOMANT
     Dosage: 30 MG, 1X/DAY
     Route: 058
     Dates: start: 20150803
  29. ATENOLOL. [Concomitant]
     Active Substance: ATENOLOL
     Indication: HYPERTENSION
     Dosage: 25 MG, 1X/DAY (1(ONE) ORAL DAILY)
     Route: 048
     Dates: start: 20150713
  30. KLOR-CON [Concomitant]
     Active Substance: POTASSIUM CHLORIDE
     Indication: BLOOD POTASSIUM ABNORMAL
     Dosage: 20 MEQ, 1X/DAY (TABLET ER, 2 (TWO) QD)
     Route: 048
     Dates: start: 20150126
  31. VICTOZA [Concomitant]
     Active Substance: LIRAGLUTIDE
     Dosage: UNK
  32. CINNAMON. [Concomitant]
     Active Substance: CINNAMON
     Dosage: 1000 MG, 1X/DAY
  33. LEVOTHYROXINE SODIUM. [Concomitant]
     Active Substance: LEVOTHYROXINE SODIUM
     Indication: THYROID DISORDER
     Dosage: 100 MG, 1X/DAY
     Route: 048
     Dates: start: 20141202
  34. NOVOLOG [Concomitant]
     Active Substance: INSULIN ASPART
     Indication: DIABETES MELLITUS
     Dosage: 200-300-4 UNITS
     Route: 058
     Dates: start: 2010
  35. NOVOLOG [Concomitant]
     Active Substance: INSULIN ASPART
     Dosage: 6 UNITS AT 100 IU/ML, AS NEEDED
     Route: 058
     Dates: start: 20150413
  36. VITAMIN D3 [Concomitant]
     Active Substance: CHOLECALCIFEROL
     Dosage: 50,000 EVERY OTHER WEEK
  37. ASPIRIN. [Concomitant]
     Active Substance: ASPIRIN
     Indication: DIABETES MELLITUS
     Dosage: 325 MG, 1X/DAY
  38. VICTOZA [Concomitant]
     Active Substance: LIRAGLUTIDE
     Dosage: 0.6 MG, DAILY
     Route: 058
     Dates: start: 20120713, end: 20121113
  39. LOVAZA [Concomitant]
     Active Substance: OMEGA-3-ACID ETHYL ESTERS
     Dosage: 1 G, 3X/DAY
     Route: 048
     Dates: start: 20140623
  40. SIMVASTATIN. [Concomitant]
     Active Substance: SIMVASTATIN
     Dosage: 40 MG, 1X/DAY
     Route: 048
     Dates: start: 20120523, end: 20120620
  41. SYNTHROID [Concomitant]
     Active Substance: LEVOTHYROXINE SODIUM
     Dosage: 88 UG, 1X/DAY
     Route: 048
     Dates: start: 20101222, end: 20120210
  42. LOSARTAN POTASSIUM. [Concomitant]
     Active Substance: LOSARTAN POTASSIUM
     Indication: HYPERTENSION
     Dosage: 50 MG, 2X/DAY
  43. HYDROCHLOROTHIAZIDE. [Concomitant]
     Active Substance: HYDROCHLOROTHIAZIDE
     Dosage: 50 MG, 1X/DAY
     Route: 048
     Dates: start: 20121015, end: 20140321
  44. VICTOZA [Concomitant]
     Active Substance: LIRAGLUTIDE
     Dosage: 6 MG/ML, DAILY
     Route: 058
  45. LOVAZA [Concomitant]
     Active Substance: OMEGA-3-ACID ETHYL ESTERS
     Dosage: 2 MG, 2X/DAY (CAPSULE, 2 (TWO) ORAL TWICE A DAY)
     Route: 048
     Dates: start: 20110928, end: 20120810
  46. INSULIN ISOPHANE BOVINE [Concomitant]
     Active Substance: INSULIN BEEF
     Dosage: UNK, 2X/DAY (16 UNITS ACB AND 18 UNITS ACS)
     Dates: start: 20120523, end: 20121113
  47. LISINOPRIL. [Concomitant]
     Active Substance: LISINOPRIL
     Dosage: 20 MG, 1X/DAY
     Route: 048
     Dates: start: 20101222, end: 20110527
  48. GINKGO BILOBA [Concomitant]
     Active Substance: GINKGO
     Dosage: 120 MG, 2X/DAY
  49. ATORVASTATIN CALCIUM. [Concomitant]
     Active Substance: ATORVASTATIN CALCIUM
     Dosage: 40 MG, 1X/DAY
     Route: 048
     Dates: start: 20141027
  50. ALENDRONATE [Concomitant]
     Active Substance: ALENDRONATE SODIUM
     Indication: BONE DISORDER
     Dosage: 20 MG, WEEKLY
     Dates: start: 2014
  51. VITAMIN D3 [Concomitant]
     Active Substance: CHOLECALCIFEROL
     Dosage: 50000 IU, 1X/DAY
     Route: 048
     Dates: start: 20120523
  52. LIPITOR [Concomitant]
     Active Substance: ATORVASTATIN CALCIUM
     Dosage: 40 MG, 1X/DAY
     Route: 048
     Dates: start: 20120620
  53. SYNTHROID [Concomitant]
     Active Substance: LEVOTHYROXINE SODIUM
     Dosage: UNK
  54. PLANTAGO OVATA HUSK [Concomitant]
     Active Substance: HERBALS\PLANTAGO OVATA SEED COAT
     Dosage: 100 %, 1X/DAY
     Route: 048
  55. AMITRIPTYLINE HCL [Concomitant]
     Active Substance: AMITRIPTYLINE
     Dosage: 10 MG, 1X/DAY AT BEDTIME
     Route: 048
  56. FLAXSEED OIL [LINUM USITATISSIMUM SEED OIL] [Concomitant]
     Dosage: 1000 MG, 1X/DAY
  57. LEVOTHYROXINE SODIUM. [Concomitant]
     Active Substance: LEVOTHYROXINE SODIUM
     Dosage: 75 UG, 1X/DAY
     Route: 048
  58. LEVOTHYROXINE SODIUM. [Concomitant]
     Active Substance: LEVOTHYROXINE SODIUM
     Dosage: 100 UG, 1X/DAY
     Route: 048
     Dates: start: 20141201
  59. HYDROXYZINE HCL [Concomitant]
     Active Substance: HYDROXYZINE HYDROCHLORIDE
     Dosage: 10 MG, 1X/DAY
     Route: 048
  60. AMMONIUM LACTATE. [Concomitant]
     Active Substance: AMMONIUM LACTATE
     Dosage: 12 %, AS NEEDED
     Route: 061

REACTIONS (16)
  - Macular fibrosis [Unknown]
  - Headache [Not Recovered/Not Resolved]
  - Insomnia [Unknown]
  - Phytosterol level increased [Unknown]
  - Glycosylated haemoglobin increased [Unknown]
  - Vitamin B12 increased [Unknown]
  - Blood creatinine increased [Unknown]
  - Glomerular filtration rate decreased [Unknown]
  - Macular oedema [Unknown]
  - Osteopenia [Unknown]
  - Product complaint [Not Recovered/Not Resolved]
  - Diabetic retinopathy [Unknown]
  - Low density lipoprotein increased [Unknown]
  - Blood prolactin increased [Unknown]
  - Thyroxine free increased [Unknown]
  - Poor quality product administered [Unknown]

NARRATIVE: CASE EVENT DATE: 201004
